FAERS Safety Report 7564449-0 (Version None)
Quarter: 2011Q2

REPORT INFORMATION
  Report Type: 
  Country: None (occurrence: None)
  Receive Date: 20110622
  Receipt Date: 20110615
  Transmission Date: 20111010
  Serious: Yes (Hospitalization)
  Sender: FDA-Public Use
  Company Number: PHHO2010FR00493

PATIENT
  Sex: Male
  Weight: 98 kg

DRUGS (2)
  1. CERTICAN [Suspect]
     Indication: RENAL TRANSPLANT
     Dosage: 2 MG PER DAY
     Route: 048
     Dates: start: 20091212
  2. AEB071 [Suspect]
     Indication: RENAL TRANSPLANT
     Dosage: 600 MG PER DAY
     Route: 048
     Dates: start: 20091213, end: 20100406

REACTIONS (7)
  - WEIGHT DECREASED [None]
  - DYSPEPSIA [None]
  - ASTHENIA [None]
  - ABDOMINAL PAIN [None]
  - DECREASED APPETITE [None]
  - LYMPHATIC FISTULA [None]
  - AGEUSIA [None]
